FAERS Safety Report 24593434 (Version 5)
Quarter: 2025Q1

REPORT INFORMATION
  Report Type: Spontaneous
  Country: JP (occurrence: JP)
  Receive Date: 20241108
  Receipt Date: 20250218
  Transmission Date: 20250409
  Serious: No
  Sender: PFIZER
  Company Number: JP-PFIZER INC-202400293913

PATIENT

DRUGS (1)
  1. COMIRNATY (RAXTOZINAMERAN) [Suspect]
     Active Substance: RAXTOZINAMERAN
     Indication: COVID-19 immunisation

REACTIONS (2)
  - Device issue [Unknown]
  - Device breakage [Unknown]

NARRATIVE: CASE EVENT DATE: 20241028
